FAERS Safety Report 19856669 (Version 1)
Quarter: 2021Q3

REPORT INFORMATION
  Report Type: Spontaneous
  Country: FR (occurrence: FR)
  Receive Date: 20210920
  Receipt Date: 20210920
  Transmission Date: 20211014
  Serious: Yes (Life-Threatening, Other)
  Sender: FDA-Public Use
  Company Number: FR-MYLANLABS-2021M1063511

PATIENT
  Age: 36 Year
  Sex: Female

DRUGS (4)
  1. ONDANSETRON [Suspect]
     Active Substance: ONDANSETRON
     Indication: ANTIEMETIC SUPPORTIVE CARE
     Dosage: 4 MILLIGRAM
     Route: 042
     Dates: start: 20210419, end: 20210419
  2. SUFENTANIL [Suspect]
     Active Substance: SUFENTANIL
     Indication: ANALGESIC THERAPY
     Dosage: 7 MILLIGRAM
     Route: 008
     Dates: start: 20210419, end: 20210419
  3. ANGUSTA [Suspect]
     Active Substance: MISOPROSTOL
     Indication: FAILED INDUCTION OF LABOUR
     Dosage: 4 DOSAGE FORM
     Route: 048
     Dates: start: 20210419, end: 20210419
  4. ROPIVACAINE HYDROCHLORIDE MONOHYDRATE [Suspect]
     Active Substance: ROPIVACAINE HYDROCHLORIDE
     Indication: ANALGESIC THERAPY
     Dosage: 38.4 MILLIGRAM
     Route: 008
     Dates: start: 20210419, end: 20210419

REACTIONS (2)
  - Postpartum haemorrhage [Recovered/Resolved with Sequelae]
  - Uterine hypotonus [Recovered/Resolved with Sequelae]

NARRATIVE: CASE EVENT DATE: 20210419
